FAERS Safety Report 18219836 (Version 1)
Quarter: 2020Q3

REPORT INFORMATION
  Report Type: Spontaneous
  Country: TW (occurrence: TW)
  Receive Date: 20200901
  Receipt Date: 20200901
  Transmission Date: 20201103
  Serious: Yes (Other)
  Sender: FDA-Public Use
  Company Number: TW-ROCHE-2668967

PATIENT
  Age: 21 Year
  Sex: Female
  Weight: 38 kg

DRUGS (6)
  1. PREDNISOLONE. [Concomitant]
     Active Substance: PREDNISOLONE
     Indication: PROPHYLAXIS AGAINST TRANSPLANT REJECTION
     Dates: start: 2015, end: 201912
  2. PROGRAF [Concomitant]
     Active Substance: TACROLIMUS
     Dates: start: 2020
  3. PROGRAF [Concomitant]
     Active Substance: TACROLIMUS
     Indication: PROPHYLAXIS AGAINST TRANSPLANT REJECTION
     Dates: start: 2015, end: 201912
  4. CELLCEPT [Suspect]
     Active Substance: MYCOPHENOLATE MOFETIL\MYCOPHENOLATE MOFETIL HYDROCHLORIDE
     Indication: PROPHYLAXIS AGAINST TRANSPLANT REJECTION
     Route: 048
     Dates: start: 2015, end: 2020
  5. PROGRAF [Concomitant]
     Active Substance: TACROLIMUS
     Dates: start: 201912, end: 2020
  6. CELLCEPT [Suspect]
     Active Substance: MYCOPHENOLATE MOFETIL\MYCOPHENOLATE MOFETIL HYDROCHLORIDE
     Route: 048
     Dates: start: 2020

REACTIONS (2)
  - Atypical haemolytic uraemic syndrome [Unknown]
  - Transplant rejection [Unknown]

NARRATIVE: CASE EVENT DATE: 20191204
